FAERS Safety Report 4477814-5 (Version None)
Quarter: 2004Q4

REPORT INFORMATION
  Report Type: 
  Country: None (occurrence: None)
  Receive Date: 20041014
  Receipt Date: 20041006
  Transmission Date: 20050328
  Serious: Yes (Hospitalization)
  Sender: FDA-Public Use
  Company Number: THQ2004A00893

PATIENT
  Age: 56 Year
  Sex: Female

DRUGS (6)
  1. ACTOS [Suspect]
     Indication: DIABETES MELLITUS
     Route: 065
  2. MATRILIX (INDAPAMIDE) [Concomitant]
  3. PRAZOSIN HCL [Concomitant]
  4. MICARDIS [Concomitant]
  5. LIPITOR [Concomitant]
  6. SOMAC (PANTOPRAZOLE SODIUM) [Concomitant]

REACTIONS (1)
  - CHEST PAIN [None]
